FAERS Safety Report 20951593 (Version 2)
Quarter: 2022Q2

REPORT INFORMATION
  Report Type: Spontaneous
  Country: CR (occurrence: CR)
  Receive Date: 20220613
  Receipt Date: 20220615
  Transmission Date: 20220721
  Serious: No
  Sender: FDA-Public Use
  Company Number: CR-PFIZER INC-202200821455

PATIENT
  Age: 53 Year
  Sex: Male

DRUGS (2)
  1. SUTENT [Suspect]
     Active Substance: SUNITINIB MALATE
     Dosage: 50 MG, DAILY
  2. SUTENT [Suspect]
     Active Substance: SUNITINIB MALATE
     Dosage: 3 DF (12.5)

REACTIONS (18)
  - Burning sensation [Unknown]
  - Incorrect dosage administered [Unknown]
  - Behaviour disorder [Unknown]
  - Anxiety [Unknown]
  - Irritability [Unknown]
  - Oral mucosal blistering [Unknown]
  - Arthralgia [Unknown]
  - Diarrhoea [Unknown]
  - Immune system disorder [Unknown]
  - Platelet count decreased [Unknown]
  - Haemoglobin decreased [Unknown]
  - Fatigue [Unknown]
  - Suffocation feeling [Unknown]
  - Dyspnoea [Unknown]
  - Dysgeusia [Unknown]
  - Skin fissures [Unknown]
  - Alopecia [Unknown]
  - Emotional disorder [Unknown]
